FAERS Safety Report 7042222-X (Version None)
Quarter: 2010Q3

REPORT INFORMATION
  Report Type: 
  Country: None (occurrence: None)
  Receive Date: 20100929
  Receipt Date: 20100810
  Transmission Date: 20110219
  Serious: No
  Sender: FDA-Public Use
  Company Number: US-WYE-H16845510

PATIENT
  Age: 33 Year
  Sex: Female
  Weight: 72.64 kg

DRUGS (3)
  1. PRISTIQ [Suspect]
     Indication: ANXIETY
     Dosage: 100 MG 1X PER 1 DAY
  2. PRISTIQ [Suspect]
     Indication: DEPRESSION
     Dosage: 100 MG 1X PER 1 DAY
  3. SPIRONOLACTONE [Concomitant]

REACTIONS (6)
  - DRUG EFFECT DECREASED [None]
  - DRUG WITHDRAWAL SYNDROME [None]
  - HEADACHE [None]
  - PARAESTHESIA [None]
  - SOMNOLENCE [None]
  - VISION BLURRED [None]
